FAERS Safety Report 21982108 (Version 1)
Quarter: 2023Q1

REPORT INFORMATION
  Report Type: Spontaneous
  Country: US (occurrence: US)
  Receive Date: 20230213
  Receipt Date: 20230213
  Transmission Date: 20230418
  Serious: No
  Sender: FDA-Public Use
  Company Number: US-BIOGEN-2023BI01186586

PATIENT
  Sex: Male
  Weight: 81.6 kg

DRUGS (14)
  1. AVONEX PEN [Suspect]
     Active Substance: INTERFERON BETA-1A
     Indication: Relapsing multiple sclerosis
     Route: 050
     Dates: start: 20220203, end: 20221215
  2. AVONEX PEN [Suspect]
     Active Substance: INTERFERON BETA-1A
     Route: 050
     Dates: start: 20221220
  3. AVONEX PEN [Suspect]
     Active Substance: INTERFERON BETA-1A
  4. AVONEX PEN [Suspect]
     Active Substance: INTERFERON BETA-1A
  5. CYMBALTA [Concomitant]
     Active Substance: DULOXETINE HYDROCHLORIDE
     Indication: Pain
     Route: 050
     Dates: start: 20221205
  6. NEUROTIN [Concomitant]
     Active Substance: GABAPENTIN
     Indication: Back pain
     Route: 050
     Dates: start: 20210521
  7. MOTRIN [Concomitant]
     Active Substance: IBUPROFEN
     Indication: Pain
     Route: 050
     Dates: start: 20220719
  8. ROBAXIN [Concomitant]
     Active Substance: METHOCARBAMOL
     Indication: Musculoskeletal stiffness
     Route: 050
     Dates: start: 20220503
  9. NAPROSYN [Concomitant]
     Active Substance: NAPROXEN
     Indication: Pain
     Route: 050
     Dates: start: 20210521
  10. NAPROSYN [Concomitant]
     Active Substance: NAPROXEN
     Route: 050
     Dates: start: 20220503
  11. ROXICODONE [Concomitant]
     Active Substance: OXYCODONE HYDROCHLORIDE
     Indication: Pain
     Route: 050
     Dates: start: 20191017
  12. ROXICODONE [Concomitant]
     Active Substance: OXYCODONE HYDROCHLORIDE
     Route: 050
     Dates: start: 20220503
  13. VIAGRA [Concomitant]
     Active Substance: SILDENAFIL CITRATE
     Indication: Erectile dysfunction
     Route: 050
     Dates: start: 20230125
  14. ZANAFLEX [Concomitant]
     Active Substance: TIZANIDINE HYDROCHLORIDE
     Indication: Muscle spasms
     Route: 050

REACTIONS (2)
  - Drug ineffective [Unknown]
  - Multiple sclerosis [Unknown]
